FAERS Safety Report 19393959 (Version 1)
Quarter: 2021Q2

REPORT INFORMATION
  Report Type: Spontaneous
  Country: US (occurrence: US)
  Receive Date: 20210608
  Receipt Date: 20210608
  Transmission Date: 20210717
  Serious: Yes (Hospitalization)
  Sender: FDA-Public Use
  Company Number: None

PATIENT
  Sex: Male
  Weight: 89.2 kg

DRUGS (1)
  1. TOBRAMYCIN. [Suspect]
     Active Substance: TOBRAMYCIN
     Indication: BACTERIAL INFECTION
     Dosage: ?          OTHER FREQUENCY:EVERY 12 HOURS;?
     Route: 045
     Dates: start: 20210512

REACTIONS (1)
  - Brain injury [None]
